FAERS Safety Report 11080360 (Version 1)
Quarter: 2015Q2

REPORT INFORMATION
  Report Type: Spontaneous
  Country: US (occurrence: US)
  Receive Date: 20150430
  Receipt Date: 20150430
  Transmission Date: 20150821
  Serious: No
  Sender: FDA-Public Use
  Company Number: US-GLAXOSMITHKLINE-US2015GSK058881

PATIENT
  Age: 65 Year
  Sex: Female

DRUGS (1)
  1. BENLYSTA [Suspect]
     Active Substance: BELIMUMAB
     Indication: SYSTEMIC LUPUS ERYTHEMATOSUS
     Dosage: UNK, U
     Route: 042
     Dates: start: 20150407, end: 20150407

REACTIONS (11)
  - Swelling face [Unknown]
  - Rash generalised [Unknown]
  - Nonspecific reaction [Unknown]
  - Paraesthesia oral [Unknown]
  - Ocular hyperaemia [Unknown]
  - Erythema [Unknown]
  - Cough [Unknown]
  - Pharyngeal oedema [Unknown]
  - Urticaria [Unknown]
  - Pruritus [Unknown]
  - Dysphonia [Unknown]

NARRATIVE: CASE EVENT DATE: 20150407
